FAERS Safety Report 22919190 (Version 2)
Quarter: 2024Q1

REPORT INFORMATION
  Report Type: Report from Study
  Country: US (occurrence: US)
  Receive Date: 20230907
  Receipt Date: 20240112
  Transmission Date: 20240410
  Serious: No
  Sender: FDA-Public Use
  Company Number: US-ACADIA PHARMACEUTICALS INC.-ACA-2023-PIM-003543

PATIENT
  Sex: Female

DRUGS (19)
  1. NUPLAZID [Suspect]
     Active Substance: PIMAVANSERIN TARTRATE
     Indication: Parkinson^s disease psychosis
     Dosage: 34 MILLIGRAM, QD
     Route: 048
     Dates: start: 20230721
  2. NUPLAZID [Suspect]
     Active Substance: PIMAVANSERIN TARTRATE
     Indication: Parkinson^s disease
  3. RYTARY [Concomitant]
     Active Substance: CARBIDOPA\LEVODOPA
  4. DROXIDOPA [Concomitant]
     Active Substance: DROXIDOPA
  5. FLUDROCORTISONE [Concomitant]
     Active Substance: FLUDROCORTISONE
  6. PAROXETINE [Concomitant]
     Active Substance: PAROXETINE
  7. CLONAZEPAM [Concomitant]
     Active Substance: CLONAZEPAM
  8. QUETIAPINE [Concomitant]
     Active Substance: QUETIAPINE
  9. PROLIA [Concomitant]
     Active Substance: DENOSUMAB
  10. VITAMIN B12 [Concomitant]
     Active Substance: CYANOCOBALAMIN
  11. VITAMINS NOS [Concomitant]
     Active Substance: VITAMINS
  12. CALCIUM [Concomitant]
     Active Substance: CALCIUM
  13. CHOLECALCIFEROL [Concomitant]
     Active Substance: CHOLECALCIFEROL
  14. LATANOPROST [Concomitant]
     Active Substance: LATANOPROST
  15. TIMOLOL [Concomitant]
     Active Substance: TIMOLOL
  16. MIDODRINE [Concomitant]
     Active Substance: MIDODRINE
  17. VITAMINS [Concomitant]
     Active Substance: VITAMINS
  18. CALCIUM\ERGOCALCIFEROL [Concomitant]
     Active Substance: CALCIUM\ERGOCALCIFEROL
  19. VITAMIN B12 [Concomitant]
     Active Substance: CYANOCOBALAMIN

REACTIONS (6)
  - Stress [Unknown]
  - Headache [Unknown]
  - Tremor [Not Recovered/Not Resolved]
  - Pain [Unknown]
  - Fall [Unknown]
  - Peripheral swelling [Unknown]
